FAERS Safety Report 25576881 (Version 1)
Quarter: 2025Q3

REPORT INFORMATION
  Report Type: Spontaneous
  Country: US (occurrence: None)
  Receive Date: 20250718
  Receipt Date: 20250718
  Transmission Date: 20251020
  Serious: Yes (Hospitalization)
  Sender: FDA-CTU
  Company Number: None

PATIENT
  Age: 4 Year
  Sex: Male
  Weight: 18.4 kg

DRUGS (3)
  1. CYCLOPHOSPHAMIDE [Suspect]
     Active Substance: CYCLOPHOSPHAMIDE
     Dates: end: 20250617
  2. NEULASTA [Suspect]
     Active Substance: PEGFILGRASTIM
     Dates: end: 20250618
  3. TOPOTECAN [Suspect]
     Active Substance: TOPOTECAN HYDROCHLORIDE
     Dates: end: 20250617

REACTIONS (23)
  - Abdominal pain [None]
  - Vomiting [None]
  - Neutropenia [None]
  - Haematemesis [None]
  - Capillary leak syndrome [None]
  - Tachycardia [None]
  - Hypotension [None]
  - Tachypnoea [None]
  - Septic shock [None]
  - Mental status changes [None]
  - Haematemesis [None]
  - Disseminated intravascular coagulation [None]
  - Abdominal compartment syndrome [None]
  - Enterococcus test positive [None]
  - Gastrointestinal necrosis [None]
  - Colitis [None]
  - Venoocclusive liver disease [None]
  - Bradycardia [None]
  - Hepatomegaly [None]
  - Blood bilirubin increased [None]
  - Thrombocytopenia [None]
  - Ascites [None]
  - Respiratory distress [None]

NARRATIVE: CASE EVENT DATE: 20250624
